FAERS Safety Report 19928357 (Version 3)
Quarter: 2021Q4

REPORT INFORMATION
  Report Type: Spontaneous
  Country: GB (occurrence: GB)
  Receive Date: 20211007
  Receipt Date: 20211126
  Transmission Date: 20220303
  Serious: Yes (Hospitalization)
  Sender: FDA-Public Use
  Company Number: None

PATIENT
  Age: 65 Year
  Sex: Female

DRUGS (3)
  1. IBUPROFEN [Suspect]
     Active Substance: IBUPROFEN
     Indication: Product used for unknown indication
     Dosage: UNK
     Route: 065
  2. CLEMIZOLE PENICILLIN [Suspect]
     Active Substance: CLEMIZOLE PENICILLIN
     Indication: Product used for unknown indication
     Dosage: UNK
     Route: 065
  3. SULFAMETHOXAZOLE\TRIMETHOPRIM [Suspect]
     Active Substance: SULFAMETHOXAZOLE\TRIMETHOPRIM
     Indication: Tonsillitis
     Dosage: UNK
     Route: 065

REACTIONS (10)
  - Feeling hot [Unknown]
  - Nasopharyngitis [Unknown]
  - Livedo reticularis [Unknown]
  - Swelling [Unknown]
  - Feeling abnormal [Unknown]
  - Rash [Unknown]
  - Drug hypersensitivity [Unknown]
  - Chills [Unknown]
  - Rash pruritic [Unknown]
  - Malaise [Unknown]
